FAERS Safety Report 5976991-4 (Version None)
Quarter: 2008Q4

REPORT INFORMATION
  Report Type: 
  Country: None (occurrence: None)
  Receive Date: 20081203
  Receipt Date: 20080313
  Transmission Date: 20090506
  Serious: Yes (Hospitalization)
  Sender: FDA-Public Use
  Company Number: US-AMGEN-QUU269663

PATIENT
  Sex: Female

DRUGS (3)
  1. ENBREL [Suspect]
     Indication: RHEUMATOID ARTHRITIS
     Route: 058
     Dates: start: 20070401
  2. METHOTREXATE [Concomitant]
     Dates: start: 20051001
  3. PLAQUENIL [Concomitant]
     Route: 048
     Dates: start: 20060401

REACTIONS (6)
  - BRONCHITIS [None]
  - GASTROENTERITIS [None]
  - INFLUENZA [None]
  - NEPHROLITHIASIS [None]
  - SINUSITIS [None]
  - TONSILLITIS [None]
